FAERS Safety Report 23060588 (Version 1)
Quarter: 2023Q4

REPORT INFORMATION
  Report Type: Spontaneous
  Country: US (occurrence: US)
  Receive Date: 20231012
  Receipt Date: 20231012
  Transmission Date: 20240109
  Serious: No
  Sender: FDA-Public Use
  Company Number: US-JNJFOC-20231001792

PATIENT
  Sex: Male

DRUGS (1)
  1. ELMIRON [Suspect]
     Active Substance: PENTOSAN POLYSULFATE SODIUM
     Indication: Bladder disorder
     Dosage: PRESCRIBED AS 4 ELMIRON PILLS DAILY, BUT PATIENT ONLY TAKES TWO
     Route: 065

REACTIONS (2)
  - Pain [Unknown]
  - Off label use [Unknown]
